FAERS Safety Report 9075928 (Version 1)
Quarter: 2013Q1

REPORT INFORMATION
  Report Type: Spontaneous
  Country: TR (occurrence: TR)
  Receive Date: 20130201
  Receipt Date: 20130201
  Transmission Date: 20140127
  Serious: Yes (Hospitalization, Disabling)
  Sender: FDA-Public Use
  Company Number: TR-B.I. PHARMACEUTICALS,INC./RIDGEFIELD-2013-AP-00077TK

PATIENT
  Age: 62 None
  Sex: Male

DRUGS (6)
  1. PRADAXA [Suspect]
     Indication: ATRIAL FIBRILLATION
     Dosage: 220 MG
     Dates: end: 20130120
  2. PRADAXA [Suspect]
     Indication: CEREBROVASCULAR ACCIDENT PROPHYLAXIS
  3. BELOC 50 [Concomitant]
     Dosage: 50 MG
  4. CIPRALEX [Concomitant]
     Dosage: DOSE OF ONE APPLICATION: 10
  5. FLOMAX 0.4 [Concomitant]
     Dosage: 0.4 MG
  6. KEPPRA 500 [Concomitant]
     Dosage: 1000 MG

REACTIONS (1)
  - Cerebral infarction [Not Recovered/Not Resolved]
